FAERS Safety Report 11323962 (Version 1)
Quarter: 2015Q3

REPORT INFORMATION
  Report Type: Spontaneous
  Country: CA (occurrence: CA)
  Receive Date: 20150730
  Receipt Date: 20150730
  Transmission Date: 20151125
  Serious: Yes (Other)
  Sender: FDA-Public Use
  Company Number: CA-ROXANE LABORATORIES, INC.-2015-RO-01238RO

PATIENT
  Age: 19 Year
  Sex: Male
  Weight: 158.8 kg

DRUGS (5)
  1. NORTRIPTYLINE [Suspect]
     Active Substance: NORTRIPTYLINE
     Indication: DEPRESSION
     Dosage: 75 MG
     Route: 065
     Dates: start: 200707
  2. OXYCONTIN [Suspect]
     Active Substance: OXYCODONE HYDROCHLORIDE
     Indication: NEURALGIA
     Route: 065
     Dates: start: 200707
  3. NAKA (MELATONIN) [Suspect]
     Active Substance: MELATONIN
     Indication: DELAYED SLEEP PHASE
     Dosage: 3 MG
     Route: 065
     Dates: start: 200711, end: 200801
  4. NORTRIPTYLINE [Suspect]
     Active Substance: NORTRIPTYLINE
     Indication: NEURALGIA
  5. CITALOPRAM [Suspect]
     Active Substance: CITALOPRAM HYDROBROMIDE
     Indication: DEPRESSION
     Dosage: 40 MG
     Route: 065
     Dates: start: 200709

REACTIONS (4)
  - Drug interaction [None]
  - Disturbance in attention [None]
  - Activities of daily living impaired [None]
  - Sedation [Recovered/Resolved]

NARRATIVE: CASE EVENT DATE: 200711
